FAERS Safety Report 5261041-8 (Version None)
Quarter: 2007Q1

REPORT INFORMATION
  Report Type: 
  Country: None (occurrence: None)
  Receive Date: 20070309
  Receipt Date: 20070303
  Transmission Date: 20070707
  Serious: Yes (Other)
  Sender: FDA-Public Use
  Company Number: US-PFIZER INC-2007016950

PATIENT
  Sex: Female
  Weight: 102.1 kg

DRUGS (1)
  1. CHANTIX [Suspect]
     Indication: EX-SMOKER
     Route: 048
     Dates: start: 20061201, end: 20070218

REACTIONS (4)
  - CARDIAC ARREST [None]
  - CONVULSION [None]
  - DYSGRAPHIA [None]
  - SUDDEN ONSET OF SLEEP [None]
